FAERS Safety Report 12085030 (Version 1)
Quarter: 2016Q1

REPORT INFORMATION
  Report Type: Spontaneous
  Country: US (occurrence: US)
  Receive Date: 20160217
  Receipt Date: 20160217
  Transmission Date: 20160526
  Serious: No
  Sender: FDA-Public Use
  Company Number: US-PERRIGO-15US013691

PATIENT
  Age: 79 Year
  Sex: Female

DRUGS (2)
  1. TRETINOIN. [Suspect]
     Active Substance: TRETINOIN
     Indication: SEBORRHOEA
     Dosage: SMALL AMOUNT, DAILY
     Route: 061
     Dates: start: 201506, end: 20150930
  2. TRETINOIN. [Suspect]
     Active Substance: TRETINOIN
     Indication: RASH

REACTIONS (1)
  - Hot flush [Recovered/Resolved]

NARRATIVE: CASE EVENT DATE: 201506
